FAERS Safety Report 7360919-9 (Version None)
Quarter: 2011Q1

REPORT INFORMATION
  Report Type: 
  Country: None (occurrence: None)
  Receive Date: 20110318
  Receipt Date: 20110307
  Transmission Date: 20110831
  Serious: Yes (Other)
  Sender: FDA-Public Use
  Company Number: PHHY2011CA16096

PATIENT
  Sex: Female

DRUGS (1)
  1. ACLASTA [Suspect]
     Indication: OSTEOPOROSIS
     Dosage: 05 ML, DAILY
     Route: 042
     Dates: start: 20110310

REACTIONS (3)
  - INFLUENZA LIKE ILLNESS [None]
  - CONFUSIONAL STATE [None]
  - FEELING ABNORMAL [None]
